FAERS Safety Report 12246627 (Version 3)
Quarter: 2016Q3

REPORT INFORMATION
  Report Type: Spontaneous
  Country: US (occurrence: US)
  Receive Date: 20160407
  Receipt Date: 20160929
  Transmission Date: 20161109
  Serious: Yes (Hospitalization, Other)
  Sender: FDA-Public Use
  Company Number: US-JNJFOC-20160313531

PATIENT
  Age: 75 Year
  Sex: Female

DRUGS (24)
  1. AMLODIPINE [Concomitant]
     Active Substance: AMLODIPINE BESYLATE
     Route: 048
  2. JANUVIA [Concomitant]
     Active Substance: SITAGLIPTIN PHOSPHATE
     Route: 048
  3. PROCHLORPERAZINE MALEATE. [Concomitant]
     Active Substance: PROCHLORPERAZINE MALEATE
     Dosage: EVERY 6 HOURS
     Route: 048
  4. SULFAMETHOXAZOLE AND TRIMETHOPRIM [Concomitant]
     Active Substance: SULFAMETHOXAZOLE\TRIMETHOPRIM
     Dosage: SULFAMETHOXAZOLE- 400 MG, TRIMETHOPRIM - 80 MG
     Route: 048
  5. TEKTURNA [Concomitant]
     Active Substance: ALISKIREN HEMIFUMARATE
  6. DOCUSATE SODIUM. [Concomitant]
     Active Substance: DOCUSATE SODIUM
     Route: 048
  7. IMBRUVICA [Suspect]
     Active Substance: IBRUTINIB
     Indication: CHRONIC LYMPHOCYTIC LEUKAEMIA
     Route: 048
     Dates: start: 20150408, end: 20150427
  8. CARVEDILOL. [Concomitant]
     Active Substance: CARVEDILOL
     Route: 048
  9. GLIPIZIDE. [Concomitant]
     Active Substance: GLIPIZIDE
  10. DESTIN [Concomitant]
     Route: 061
  11. ALBUTEROL. [Concomitant]
     Active Substance: ALBUTEROL
     Indication: DYSPNOEA
     Dosage: 2 PUFF AS NEEDED.
     Route: 045
  12. IMBRUVICA [Suspect]
     Active Substance: IBRUTINIB
     Indication: CHRONIC LYMPHOCYTIC LEUKAEMIA
     Route: 048
     Dates: start: 20140426, end: 20140502
  13. ACYCLOVIR. [Concomitant]
     Active Substance: ACYCLOVIR
     Route: 048
  14. LISINOPRIL. [Concomitant]
     Active Substance: LISINOPRIL
     Dates: end: 201604
  15. PROAIR HFA [Concomitant]
     Active Substance: ALBUTEROL SULFATE
     Dosage: INHALE 2 PUFFS EVERY 4 HOURS
  16. LATANOPROST. [Concomitant]
     Active Substance: LATANOPROST
     Dosage: 1 DROP BOTH EYE, DAILY AT BEDTIME
     Route: 047
  17. ATORVASTATIN [Concomitant]
     Active Substance: ATORVASTATIN
     Route: 048
  18. JANUVIA [Concomitant]
     Active Substance: SITAGLIPTIN PHOSPHATE
     Route: 048
  19. KLOR-CON M20 [Concomitant]
     Active Substance: POTASSIUM CHLORIDE
     Dosage: 1 PILL
  20. ALBUTEROL. [Concomitant]
     Active Substance: ALBUTEROL
     Indication: WHEEZING
     Dosage: 2 PUFF AS NEEDED.
     Route: 045
  21. METFORMIN [Concomitant]
     Active Substance: METFORMIN HYDROCHLORIDE
     Route: 048
     Dates: end: 201604
  22. ONDANSETRON HCL [Concomitant]
     Active Substance: ONDANSETRON HYDROCHLORIDE
     Dosage: EVERY 4-6 HOURS
     Route: 048
  23. ZOLPIDEM [Concomitant]
     Active Substance: ZOLPIDEM\ZOLPIDEM TARTRATE
     Indication: SLEEP DISORDER
     Dosage: AT BEDTIME
     Dates: start: 20140503
  24. ZINC OXIDE. [Concomitant]
     Active Substance: ZINC OXIDE
     Route: 061

REACTIONS (12)
  - Syncope [Recovered/Resolved]
  - Vomiting [Unknown]
  - Acute kidney injury [Recovered/Resolved]
  - Asthenia [Unknown]
  - Dizziness postural [Recovered/Resolved]
  - Decreased appetite [Unknown]
  - Constipation [Unknown]
  - Skin ulcer [Unknown]
  - Diarrhoea [Unknown]
  - Dehydration [Unknown]
  - Weight decreased [Unknown]
  - Dyspepsia [Recovering/Resolving]

NARRATIVE: CASE EVENT DATE: 20140502
